FAERS Safety Report 4773651-2 (Version None)
Quarter: 2005Q3

REPORT INFORMATION
  Report Type: 
  Country: None (occurrence: None)
  Receive Date: 20050914
  Receipt Date: 20041018
  Transmission Date: 20060218
  Serious: Yes (Death)
  Sender: FDA-Public Use
  Company Number: 163-20785-04100467

PATIENT
  Age: 47 Year
  Sex: Male

DRUGS (1)
  1. THALOMID [Suspect]
     Indication: GLIOBLASTOMA MULTIFORME
     Dosage: 1200 MG, QHS, ORAL
     Route: 048
     Dates: start: 20040628, end: 20040101

REACTIONS (1)
  - RASH [None]
